FAERS Safety Report 9742380 (Version 1)
Quarter: 2013Q4

REPORT INFORMATION
  Report Type: Spontaneous
  Country: US (occurrence: US)
  Receive Date: 20131210
  Receipt Date: 20131210
  Transmission Date: 20140711
  Serious: Yes (Other)
  Sender: FDA-Public Use
  Company Number: US-SA-2013SA128004

PATIENT
  Age: 11 Year
  Sex: Male
  Weight: 30.8 kg

DRUGS (8)
  1. FABRAZYME [Suspect]
     Indication: FABRY^S DISEASE
     Route: 042
     Dates: start: 20131105
  2. DIPHENHYDRAMINE [Concomitant]
  3. LIDOCAINE [Concomitant]
  4. NORMAL SALINE [Concomitant]
  5. SODIUM CHLORIDE [Concomitant]
  6. WATER FOR INJECTION [Concomitant]
  7. EPIPEN [Concomitant]
  8. OSTELIN CHEWABLE CALCIUM AND VITAMIN D [Concomitant]

REACTIONS (1)
  - Tooth abscess [Unknown]
